FAERS Safety Report 6907961-7 (Version None)
Quarter: 2010Q3

REPORT INFORMATION
  Report Type: 
  Country: None (occurrence: None)
  Receive Date: 20100805
  Receipt Date: 20100729
  Transmission Date: 20110219
  Serious: Yes (Life-Threatening, Hospitalization)
  Sender: FDA-Public Use
  Company Number: PHHY2010AU39773

PATIENT
  Age: 53 Year
  Sex: Male

DRUGS (9)
  1. ACLASTA [Suspect]
     Indication: OSTEOPOROSIS
     Dosage: 5 MG
     Route: 042
     Dates: start: 20100325
  2. ACTONEL [Concomitant]
     Indication: OSTEOPOROSIS
     Dosage: UNK
     Route: 048
     Dates: start: 20100325
  3. LIPITOR [Concomitant]
  4. CLOPIDOGREL BISULFATE [Concomitant]
  5. SERETIDE ^ALLEN + HANBURYS LTD^ [Concomitant]
  6. LOVAN [Concomitant]
  7. CEFTRIAXONE [Concomitant]
     Route: 042
  8. AZITHROMYCIN [Concomitant]
  9. CEPHALEXIN [Concomitant]
     Dosage: 500 MG, QID
     Route: 048

REACTIONS (20)
  - ASTHENIA [None]
  - CHEST PAIN [None]
  - COUGH [None]
  - CREPITATIONS [None]
  - DYSPNOEA [None]
  - FATIGUE [None]
  - FEELING ABNORMAL [None]
  - HYPERTENSION [None]
  - INFLUENZA LIKE ILLNESS [None]
  - LOSS OF CONSCIOUSNESS [None]
  - MECHANICAL VENTILATION [None]
  - MYALGIA [None]
  - PYREXIA [None]
  - RASH [None]
  - RESPIRATORY ACIDOSIS [None]
  - RESPIRATORY DISTRESS [None]
  - RESPIRATORY FAILURE [None]
  - TACHYCARDIA [None]
  - TACHYPNOEA [None]
  - WHEEZING [None]
